FAERS Safety Report 7153134-5 (Version None)
Quarter: 2010Q4

REPORT INFORMATION
  Report Type: 
  Country: None (occurrence: None)
  Receive Date: 20101130
  Receipt Date: 20101116
  Transmission Date: 20110411
  Serious: Yes (Hospitalization)
  Sender: FDA-Public Use
  Company Number: APP201000992

PATIENT
  Sex: Female

DRUGS (1)
  1. OXYTOCIN [Suspect]
     Indication: LABOUR INDUCTION
     Dates: start: 20101115

REACTIONS (1)
  - SKIN DISCOLOURATION [None]
